FAERS Safety Report 7905041-5 (Version None)
Quarter: 2011Q4

REPORT INFORMATION
  Report Type: 
  Country: None (occurrence: None)
  Receive Date: 20111109
  Receipt Date: 20111104
  Transmission Date: 20120403
  Serious: Yes (Hospitalization)
  Sender: FDA-Public Use
  Company Number: PHEH2011US008720

PATIENT
  Sex: Female

DRUGS (6)
  1. EXJADE [Suspect]
     Dosage: 1000 MG, DAILY
     Route: 048
     Dates: start: 20070924
  2. KEPPRA [Concomitant]
     Dosage: 1250 MG, DAILY
     Route: 048
     Dates: start: 20110112
  3. TRAMADOL HCL [Concomitant]
     Dosage: 50 MG, TID
     Route: 048
     Dates: start: 20111104
  4. EXJADE [Suspect]
     Indication: SICKLE CELL ANAEMIA
     Dosage: 875 MG, DAILY
     Route: 048
     Dates: start: 20061116
  5. EXJADE [Suspect]
     Dosage: 1500 MG, DAILY
     Route: 048
     Dates: start: 20110915
  6. MIRALAX [Concomitant]
     Dosage: 17 MG, QD
     Route: 048
     Dates: start: 20110908

REACTIONS (1)
  - HIP FRACTURE [None]
